FAERS Safety Report 12573433 (Version 1)
Quarter: 2016Q3

REPORT INFORMATION
  Report Type: Other
  Country: HR (occurrence: HR)
  Receive Date: 20160720
  Receipt Date: 20160720
  Transmission Date: 20161109
  Serious: Yes (Other)
  Sender: FDA-Public Use
  Company Number: HR-APOTEX-2016AP009936

PATIENT
  Sex: Male

DRUGS (7)
  1. DULOXETINE HCL [Suspect]
     Active Substance: DULOXETINE HYDROCHLORIDE
     Indication: PRODUCT USED FOR UNKNOWN INDICATION
     Dosage: 60 MG, UNK,17 TABLETS
     Route: 048
     Dates: start: 20160111, end: 20160111
  2. PAXIL [Suspect]
     Active Substance: PAROXETINE HYDROCHLORIDE
     Indication: PRODUCT USED FOR UNKNOWN INDICATION
     Dosage: 20 MG, UNK,27 TABLETS
     Route: 048
     Dates: start: 20160111, end: 20160111
  3. APAURIN [Suspect]
     Active Substance: DIAZEPAM
     Dosage: 5 MG, UNK,20 TABLETS
     Route: 048
     Dates: start: 20160111, end: 20160111
  4. LEPONEX [Suspect]
     Active Substance: CLOZAPINE
     Indication: PRODUCT USED FOR UNKNOWN INDICATION
     Dosage: 25 MG, UNK,55 TABLETS
     Route: 048
     Dates: start: 20160111, end: 20160111
  5. SEROQUEL [Suspect]
     Active Substance: QUETIAPINE FUMARATE
     Indication: PRODUCT USED FOR UNKNOWN INDICATION
     Dosage: 400 MG, UNK,37 TABLETS
     Route: 048
     Dates: start: 20160111, end: 20160111
  6. MODITEN                            /00000602/ [Suspect]
     Active Substance: FLUPHENAZINE HYDROCHLORIDE
     Indication: PRODUCT USED FOR UNKNOWN INDICATION
     Dosage: 2.5 MG, UNK,37 TABLETS
     Route: 048
     Dates: start: 20160111, end: 20160111
  7. TEGRETOL [Suspect]
     Active Substance: CARBAMAZEPINE
     Indication: PRODUCT USED FOR UNKNOWN INDICATION
     Dosage: 200 MG, UNK,43 TABLETS
     Route: 048
     Dates: start: 20160111, end: 20160111

REACTIONS (3)
  - Respiratory failure [Unknown]
  - Loss of consciousness [Unknown]
  - Suicide attempt [Unknown]

NARRATIVE: CASE EVENT DATE: 20160111
